FAERS Safety Report 19873799 (Version 1)
Quarter: 2021Q3

REPORT INFORMATION
  Report Type: Report from Study
  Country: US (occurrence: US)
  Receive Date: 20210922
  Receipt Date: 20210922
  Transmission Date: 20211014
  Serious: Yes (Hospitalization)
  Sender: FDA-Public Use
  Company Number: US-EISAI MEDICAL RESEARCH-EC-2021-099696

PATIENT
  Sex: Male
  Weight: 70.29 kg

DRUGS (8)
  1. CABOMETYX [Suspect]
     Active Substance: CABOZANTINIB S-MALATE
     Indication: METASTASES TO THE RESPIRATORY SYSTEM
  2. LENVIMA [Suspect]
     Active Substance: LENVATINIB
     Indication: RENAL CANCER
     Dosage: DOSE AND FREQUENCY UNKNOWN
     Route: 048
     Dates: end: 20210625
  3. CABOMETYX [Suspect]
     Active Substance: CABOZANTINIB S-MALATE
     Indication: GASTROINTESTINAL NEOPLASM
  4. LENVIMA [Suspect]
     Active Substance: LENVATINIB
     Indication: METASTASES TO LUNG
     Dosage: DOSE AND FREQUENCY UNKNOWN
     Route: 048
     Dates: start: 20210712
  5. LENVIMA [Suspect]
     Active Substance: LENVATINIB
     Indication: METASTASES TO THE RESPIRATORY SYSTEM
  6. CABOMETYX [Suspect]
     Active Substance: CABOZANTINIB S-MALATE
     Indication: RENAL CANCER
     Route: 048
  7. CABOMETYX [Suspect]
     Active Substance: CABOZANTINIB S-MALATE
     Indication: METASTASES TO LUNG
  8. EVEROLIMUS. [Concomitant]
     Active Substance: EVEROLIMUS

REACTIONS (1)
  - Pancreatitis [Unknown]

NARRATIVE: CASE EVENT DATE: 2021
